FAERS Safety Report 22040159 (Version 1)
Quarter: 2023Q1

REPORT INFORMATION
  Report Type: Spontaneous
  Country: US (occurrence: None)
  Receive Date: 20230224
  Receipt Date: 20230224
  Transmission Date: 20230417
  Serious: No
  Sender: FDA-Public Use
  Company Number: None

PATIENT
  Sex: Male

DRUGS (2)
  1. SOMATULINE DEPOT [Suspect]
     Active Substance: LANREOTIDE ACETATE
     Indication: Acromegaly
     Route: 058
     Dates: start: 20131101, end: 20140701
  2. SOMAVERT [Concomitant]
     Active Substance: PEGVISOMANT

REACTIONS (2)
  - Insulin-like growth factor increased [None]
  - Blood growth hormone increased [None]
